FAERS Safety Report 6095226-8 (Version None)
Quarter: 2009Q1

REPORT INFORMATION
  Report Type: 
  Country: None (occurrence: None)
  Receive Date: 20090227
  Receipt Date: 20080225
  Transmission Date: 20090719
  Serious: No
  Sender: FDA-Public Use
  Company Number: A0709968A

PATIENT
  Age: 60 Year
  Sex: Male
  Weight: 100.9 kg

DRUGS (4)
  1. LAMICTAL [Suspect]
     Indication: BIPOLAR DISORDER
     Dosage: 150MG UNKNOWN
     Route: 048
     Dates: start: 20050401, end: 20080101
  2. EFFEXOR [Concomitant]
     Dosage: 225MG UNKNOWN
     Route: 065
  3. CYMBALTA [Concomitant]
     Dosage: 40MG UNKNOWN
  4. OXYCONTIN [Concomitant]
     Indication: BACK PAIN
     Route: 065

REACTIONS (2)
  - DISTURBANCE IN ATTENTION [None]
  - DRUG INEFFECTIVE [None]
